FAERS Safety Report 12689680 (Version 1)
Quarter: 2016Q3

REPORT INFORMATION
  Report Type: Spontaneous
  Country: JP (occurrence: JP)
  Receive Date: 20160826
  Receipt Date: 20160826
  Transmission Date: 20161109
  Serious: Yes (Hospitalization, Other)
  Sender: FDA-Public Use
  Company Number: JP-TAIHO ONCOLOGY INC-JPTT160821

PATIENT

DRUGS (2)
  1. LONSURF [Suspect]
     Active Substance: TIPIRACIL HYDROCHLORIDE\TRIFLURIDINE
     Indication: COLORECTAL CANCER
     Dosage: DETAILS NOT REPORTED
     Route: 048
  2. RHEUMATREX [Interacting]
     Active Substance: METHOTREXATE SODIUM
     Dosage: DETAILS NOT REPORTED
     Route: 048

REACTIONS (2)
  - Renal disorder [Not Recovered/Not Resolved]
  - Drug interaction [Not Recovered/Not Resolved]
